FAERS Safety Report 19163290 (Version 2)
Quarter: 2021Q2

REPORT INFORMATION
  Report Type: Spontaneous
  Country: US (occurrence: US)
  Receive Date: 20210421
  Receipt Date: 20210531
  Transmission Date: 20210717
  Serious: Yes (Life-Threatening, Hospitalization, Other)
  Sender: FDA-Public Use
  Company Number: US-BRISTOL-MYERS SQUIBB COMPANY-BMS-2021-037297

PATIENT
  Age: 49 Year
  Sex: Female

DRUGS (1)
  1. ELIQUIS [Suspect]
     Active Substance: APIXABAN
     Indication: ANTIPHOSPHOLIPID SYNDROME
     Dosage: UNK
     Route: 065

REACTIONS (6)
  - Antiphospholipid syndrome [Unknown]
  - Thrombotic microangiopathy [Unknown]
  - Troponin increased [Unknown]
  - Drug ineffective for unapproved indication [Unknown]
  - Renal failure [Unknown]
  - Heavy menstrual bleeding [Unknown]
